FAERS Safety Report 12346648 (Version 3)
Quarter: 2016Q3

REPORT INFORMATION
  Report Type: Report from Study
  Country: CN (occurrence: CN)
  Receive Date: 20160509
  Receipt Date: 20160725
  Transmission Date: 20161109
  Serious: Yes (Death)
  Sender: FDA-Public Use
  Company Number: CN-ASTELLAS-2016JP006937AA

PATIENT
  Age: 80 Year
  Sex: Male
  Weight: 57 kg

DRUGS (2)
  1. BENZENE SULFONIC ACID AMLIDOPINE [Concomitant]
     Indication: PRODUCT USED FOR UNKNOWN INDICATION
     Route: 048
     Dates: start: 2015, end: 20160417
  2. ENZALUTAMIDE [Suspect]
     Active Substance: ENZALUTAMIDE
     Indication: HORMONE-REFRACTORY PROSTATE CANCER
     Route: 048
     Dates: start: 20150924, end: 20160417

REACTIONS (1)
  - Death [Fatal]

NARRATIVE: CASE EVENT DATE: 20160418
